FAERS Safety Report 7160078-1 (Version None)
Quarter: 2010Q4

REPORT INFORMATION
  Report Type: 
  Country: None (occurrence: None)
  Receive Date: 20101214
  Receipt Date: 20091123
  Transmission Date: 20110411
  Serious: No
  Sender: FDA-Public Use
  Company Number: US-AMGEN-TCS376118

PATIENT

DRUGS (1)
  1. ENBREL [Suspect]
     Indication: PRODUCT USED FOR UNKNOWN INDICATION
     Dosage: UNK UNK, UNK
     Dates: start: 20090809, end: 20091103

REACTIONS (4)
  - CHEST DISCOMFORT [None]
  - HEADACHE [None]
  - NECK PAIN [None]
  - PARAESTHESIA [None]
